FAERS Safety Report 6593393-0 (Version None)
Quarter: 2010Q1

REPORT INFORMATION
  Report Type: 
  Country: None (occurrence: None)
  Receive Date: 20100222
  Receipt Date: 20090409
  Transmission Date: 20100710
  Serious: No
  Sender: FDA-Public Use
  Company Number: US-BRISTOL-MYERS SQUIBB COMPANY-14556708

PATIENT
  Age: 61 Year
  Sex: Male
  Weight: 98 kg

DRUGS (5)
  1. ORENCIA [Suspect]
     Indication: RHEUMATOID ARTHRITIS
     Dosage: 03NOV,06OCT-8634784;03NOV-8M36351;1DEC-8433083;5NOV,29DEC-8M38451;1NOV,26JAN09-8M58507.
     Route: 042
     Dates: start: 20080918
  2. LEFLUNOMIDE [Suspect]
  3. PREDNISONE [Suspect]
     Route: 048
  4. FOLIC ACID [Concomitant]
  5. LEXAPRO [Concomitant]

REACTIONS (5)
  - BACK PAIN [None]
  - BRONCHITIS [None]
  - COUGH [None]
  - FATIGUE [None]
  - PYREXIA [None]
